FAERS Safety Report 7137044-5 (Version None)
Quarter: 2010Q4

REPORT INFORMATION
  Report Type: 
  Country: None (occurrence: None)
  Receive Date: 20101206
  Receipt Date: 20080912
  Transmission Date: 20110411
  Serious: Yes (Hospitalization)
  Sender: FDA-Public Use
  Company Number: JP-JNJFOC-20071201993

PATIENT
  Sex: Male

DRUGS (11)
  1. FINIBAX [Suspect]
     Indication: PNEUMONIA
     Route: 041
  2. CRAVIT [Concomitant]
     Indication: PNEUMONIA
     Route: 048
  3. KN-3B [Concomitant]
     Indication: DEHYDRATION
     Route: 041
  4. KN-3B [Concomitant]
     Route: 041
  5. KN-3B [Concomitant]
     Indication: PNEUMONIA
     Route: 041
  6. KN-3B [Concomitant]
     Route: 041
  7. VITAMEDIN [Concomitant]
     Indication: PNEUMONIA
     Route: 041
  8. SEISHOKU [Concomitant]
     Indication: PNEUMONIA
     Route: 041
  9. SEISHOKU [Concomitant]
     Route: 041
  10. DALACIN-S [Concomitant]
     Indication: PNEUMONIA
     Route: 041
  11. DECADRON [Concomitant]
     Indication: PNEUMONIA
     Route: 041

REACTIONS (9)
  - ANAEMIA [None]
  - BLOOD CREATININE INCREASED [None]
  - BLOOD POTASSIUM DECREASED [None]
  - BLOOD SODIUM INCREASED [None]
  - BLOOD UREA INCREASED [None]
  - CONDITION AGGRAVATED [None]
  - DEHYDRATION [None]
  - PLATELET COUNT DECREASED [None]
  - WHITE BLOOD CELL COUNT DECREASED [None]
